FAERS Safety Report 12282660 (Version 2)
Quarter: 2016Q2

REPORT INFORMATION
  Report Type: Spontaneous
  Country: DE (occurrence: DE)
  Receive Date: 20160419
  Receipt Date: 20160527
  Transmission Date: 20160815
  Serious: Yes (Hospitalization)
  Sender: FDA-Public Use
  Company Number: DE-MUNDIPHARMA DS AND PHARMACOVIGILANCE-DEU-2016-0017897

PATIENT
  Sex: Male

DRUGS (2)
  1. TARGIN  RETARDTABLETTEN [Suspect]
     Active Substance: NALOXONE HYDROCHLORIDE\OXYCODONE HYDROCHLORIDE
     Indication: PAIN
     Dosage: 100/50 MG, DAILY
     Route: 048
  2. TARGIN  RETARDTABLETTEN [Suspect]
     Active Substance: NALOXONE HYDROCHLORIDE\OXYCODONE HYDROCHLORIDE
     Dosage: 40/20 MG, BID
     Route: 048

REACTIONS (1)
  - Cardiac disorder [Unknown]
